FAERS Safety Report 5774889-8 (Version None)
Quarter: 2008Q2

REPORT INFORMATION
  Report Type: 
  Country: None (occurrence: None)
  Receive Date: 20080617
  Receipt Date: 20080610
  Transmission Date: 20081010
  Serious: Yes (Hospitalization)
  Sender: FDA-Public Use
  Company Number: US-AVENTIS-200813395US

PATIENT
  Age: 86 Year
  Sex: Male

DRUGS (23)
  1. FUROSEMIDE [Suspect]
  2. NITROGLYCERIN [Suspect]
     Route: 060
  3. METOCLOPRAMIDE [Suspect]
  4. ISOSORBIDE DINITRATE [Suspect]
  5. SERTRALINE [Suspect]
  6. SIMVASTATIN [Suspect]
  7. FLUNISOLIDE [Suspect]
     Dosage: DOSE: UNK
  8. IPRATROPIUM BROMIDE [Suspect]
     Dosage: DOSE: UNK
  9. ALBUTEROL [Suspect]
     Dosage: DOSE: UNK
  10. MOMETASONE FUROATE [Suspect]
     Dosage: DOSE: UNK
  11. CYPROHEPATADINE [Suspect]
  12. FAMOTIDINE [Suspect]
  13. MAGNESIUM GLUCONATE [Suspect]
  14. MODAFINIL [Suspect]
  15. INSULIN ASPART [Suspect]
     Dosage: DOSE: UNK
  16. ISOPHANE INSULIN [Suspect]
  17. DONEPEZIL HCL [Suspect]
  18. ASPIRIN [Concomitant]
     Dosage: DOSE: UNK
  19. CLOPIDOGREL [Concomitant]
     Dosage: DOSE: UNK
  20. LISINOPRIL [Concomitant]
  21. METOPROLOL [Concomitant]
  22. LEVETIRACETAM [Concomitant]
  23. LEVETIRACETAM [Concomitant]

REACTIONS (3)
  - ANOREXIA [None]
  - DEHYDRATION [None]
  - NAUSEA [None]
